FAERS Safety Report 12529552 (Version 1)
Quarter: 2016Q3

REPORT INFORMATION
  Report Type: Spontaneous
  Country: DE (occurrence: DE)
  Receive Date: 20160706
  Receipt Date: 20160706
  Transmission Date: 20161109
  Serious: Yes (Death)
  Sender: FDA-Public Use
  Company Number: DE-CIPLA LTD.-2012DE00363

PATIENT

DRUGS (7)
  1. CARBOPLATIN. [Suspect]
     Active Substance: CARBOPLATIN
     Indication: MALIGNANT PERITONEAL NEOPLASM
  2. CARBOPLATIN. [Suspect]
     Active Substance: CARBOPLATIN
     Indication: OVARIAN CANCER RECURRENT
     Dosage: AUC 6, OVER APPROXIMATELY 30 MIN, ON DAY 1, EVERY 21 DAYS
     Route: 042
  3. FOLIC ACID. [Concomitant]
     Active Substance: FOLIC ACID
     Dosage: UNK, 350-1000 MICRO GRAMS
     Route: 048
  4. PEMETREXED [Suspect]
     Active Substance: PEMETREXED
     Indication: OVARIAN CANCER RECURRENT
     Dosage: 500 MG/M2, OVER 10 MIN, ON DAY 1
     Route: 042
  5. VITAMIN B12 (CYNACOBALAMINE) [Concomitant]
     Dosage: 1000 MICROGRAMS, EVERY 9 WEEKS
     Route: 030
  6. PEMETREXED [Suspect]
     Active Substance: PEMETREXED
     Indication: MALIGNANT PERITONEAL NEOPLASM
  7. DEXAMETHSONE [Concomitant]
     Active Substance: DEXAMETHASONE
     Indication: ALLERGY PROPHYLAXIS
     Dosage: 4 MG, BID FOR 3 DAYS, STRATING ONE DAY BEFORE PEMETREXED ADMINISTRATION
     Route: 048

REACTIONS (1)
  - Multiple organ dysfunction syndrome [Fatal]
